FAERS Safety Report 8373373-5 (Version None)
Quarter: 2012Q2

REPORT INFORMATION
  Report Type: 
  Country: None (occurrence: None)
  Receive Date: 20120521
  Receipt Date: 20120507
  Transmission Date: 20120825
  Serious: Yes (Congenital Anomaly)
  Sender: FDA-Public Use
  Company Number: US-ELI_LILLY_AND_COMPANY-US201205004786

PATIENT

DRUGS (10)
  1. CYMBALTA [Suspect]
     Dosage: 60 MG, QD
     Route: 064
     Dates: end: 20110401
  2. PRENATAL PLUS IRON [Concomitant]
     Dosage: 1 DF, QD
     Route: 064
     Dates: end: 20111230
  3. LABETALOL HCL [Concomitant]
     Dosage: 100 MG, QD
     Route: 064
     Dates: end: 20111230
  4. LABETALOL HCL [Concomitant]
     Dosage: 100 MG, QD
     Route: 064
     Dates: end: 20111230
  5. CYMBALTA [Suspect]
     Dosage: 30 MG, QD
     Route: 064
     Dates: start: 20110401, end: 20110511
  6. CYMBALTA [Suspect]
     Dosage: 30 MG, QD
     Route: 064
     Dates: start: 20110401, end: 20110511
  7. CYMBALTA [Suspect]
     Dosage: 30 MG, QOD
     Dates: start: 20110512, end: 20110601
  8. PRENATAL PLUS IRON [Concomitant]
     Dosage: 1 DF, QD
     Route: 064
     Dates: end: 20111230
  9. CYMBALTA [Suspect]
     Dosage: 60 MG, QD
     Route: 064
     Dates: end: 20110401
  10. CYMBALTA [Suspect]
     Dosage: 30 MG, QOD
     Dates: start: 20110512, end: 20110601

REACTIONS (4)
  - FOETAL EXPOSURE DURING PREGNANCY [None]
  - PULMONARY ARTERY STENOSIS CONGENITAL [None]
  - ATRIAL SEPTAL DEFECT [None]
  - GASTROOESOPHAGEAL REFLUX DISEASE [None]
